FAERS Safety Report 8354710-4 (Version None)
Quarter: 2012Q2

REPORT INFORMATION
  Report Type: 
  Country: None (occurrence: None)
  Receive Date: 20120511
  Receipt Date: 20120504
  Transmission Date: 20120825
  Serious: Yes (Hospitalization)
  Sender: FDA-Public Use
  Company Number: US-GLAXOSMITHKLINE-A0939978A

PATIENT
  Age: 65 Year
  Sex: Male
  Weight: 66.4 kg

DRUGS (1)
  1. AVANDIA [Suspect]
     Indication: DIABETES MELLITUS
     Route: 048
     Dates: end: 20080401

REACTIONS (3)
  - CARDIAC FAILURE CONGESTIVE [None]
  - INSOMNIA [None]
  - ASTHENIA [None]
